FAERS Safety Report 7113334-7 (Version None)
Quarter: 2010Q4

REPORT INFORMATION
  Report Type: 
  Country: None (occurrence: None)
  Receive Date: 20101119
  Receipt Date: 20101104
  Transmission Date: 20110411
  Serious: Yes (Hospitalization, Other)
  Sender: FDA-Public Use
  Company Number: FR-GENENTECH-309586

PATIENT
  Age: 16 Year
  Sex: Female

DRUGS (5)
  1. XOLAIR [Suspect]
     Indication: PRODUCT USED FOR UNKNOWN INDICATION
     Dosage: 150 MG, QD
     Route: 058
     Dates: start: 20100601
  2. CORTISONE [Suspect]
     Indication: PRODUCT USED FOR UNKNOWN INDICATION
     Dosage: 40 MG, QD
  3. SINGULAIR [Concomitant]
     Indication: PRODUCT USED FOR UNKNOWN INDICATION
  4. SERETIDE [Concomitant]
     Indication: PRODUCT USED FOR UNKNOWN INDICATION
  5. AERIUS [Concomitant]
     Indication: PRODUCT USED FOR UNKNOWN INDICATION

REACTIONS (16)
  - CONJUNCTIVITIS [None]
  - DEFORMITY [None]
  - DERMATITIS ATOPIC [None]
  - DRY SKIN [None]
  - ECZEMA [None]
  - ERYTHEMA [None]
  - HEADACHE [None]
  - HUMAN ANTI-MOUSE ANTIBODY POSITIVE [None]
  - LIP DRY [None]
  - MUCOSAL DRYNESS [None]
  - OEDEMA [None]
  - PRURITUS GENERALISED [None]
  - RASH GENERALISED [None]
  - SKIN DISORDER [None]
  - SPEECH DISORDER [None]
  - URTICARIA [None]
